FAERS Safety Report 9883662 (Version 1)
Quarter: 2014Q1

REPORT INFORMATION
  Report Type: Report from Study
  Country: AR (occurrence: AR)
  Receive Date: 20140210
  Receipt Date: 20140210
  Transmission Date: 20141002
  Serious: Yes (Hospitalization, Other)
  Sender: FDA-Public Use
  Company Number: AR-ROCHE-1345483

PATIENT
  Sex: Female

DRUGS (1)
  1. RANIBIZUMAB [Suspect]
     Indication: VISUAL IMPAIRMENT
     Route: 050
     Dates: start: 20131009

REACTIONS (5)
  - Cardiac disorder [Recovering/Resolving]
  - Arrhythmia [Recovering/Resolving]
  - Infection [Recovering/Resolving]
  - Movement disorder [Recovering/Resolving]
  - Visual acuity reduced [Not Recovered/Not Resolved]
